FAERS Safety Report 9450989 (Version 1)
Quarter: 2013Q3

REPORT INFORMATION
  Report Type: Spontaneous
  Country: CA (occurrence: CA)
  Receive Date: 20130809
  Receipt Date: 20130809
  Transmission Date: 20140515
  Serious: Yes (Hospitalization, Other)
  Sender: FDA-Public Use
  Company Number: CA-AMGEN-CANSP2013054840

PATIENT
  Age: 44 Year
  Sex: Male

DRUGS (9)
  1. ENBREL [Suspect]
     Indication: ANKYLOSING SPONDYLITIS
     Dosage: 50 MG, UNK
     Route: 065
     Dates: start: 20080621
  2. PANTOPRAZOLE [Concomitant]
     Dosage: 40 MG, QD
  3. NORTRIPTYLINE [Concomitant]
     Dosage: 10 MG, QD
  4. ALPRAZOLAM [Concomitant]
     Dosage: 0.25 MG, UNK
  5. RAMIPRIL [Concomitant]
     Dosage: 10 MG, QD
  6. HYDROCODONE [Concomitant]
     Dosage: 30 MG, QD
  7. DEPAMIDE [Concomitant]
     Dosage: 25 MG, QD
  8. HYDROMORPHONE [Concomitant]
     Dosage: 8 MG, QD
  9. FUROSEMIDE [Concomitant]
     Dosage: 40 MG, QD

REACTIONS (8)
  - Cardiac operation [Unknown]
  - Pulmonary oedema [Unknown]
  - Pneumothorax [Unknown]
  - Intervertebral disc degeneration [Unknown]
  - Skin fissures [Unknown]
  - Oedema peripheral [Unknown]
  - Pneumonia [Unknown]
  - Weight decreased [Unknown]
